FAERS Safety Report 21482008 (Version 1)
Quarter: 2022Q4

REPORT INFORMATION
  Report Type: Spontaneous
  Country: GR (occurrence: GR)
  Receive Date: 20221020
  Receipt Date: 20221020
  Transmission Date: 20230112
  Serious: Yes (Other)
  Sender: FDA-Public Use
  Company Number: GR-GREOF-202201751

PATIENT
  Age: 69 Year
  Sex: Female
  Weight: 84 kg

DRUGS (9)
  1. EZETIMIBE [Suspect]
     Active Substance: EZETIMIBE
     Indication: Type V hyperlipidaemia
     Route: 065
     Dates: start: 20200501, end: 20200630
  2. LIPITOR [Suspect]
     Active Substance: ATORVASTATIN CALCIUM
     Indication: Type V hyperlipidaemia
     Route: 065
     Dates: start: 19940101, end: 19951201
  3. PITAVASTATIN CALCIUM [Suspect]
     Active Substance: PITAVASTATIN CALCIUM
     Indication: Type V hyperlipidaemia
     Route: 065
     Dates: start: 20200401, end: 20201201
  4. PRAVASTATIN SODIUM [Suspect]
     Active Substance: PRAVASTATIN SODIUM
     Indication: Type V hyperlipidaemia
     Route: 065
     Dates: start: 20210501, end: 20220131
  5. EZETIMIBE\ROSUVASTATIN ZINC [Suspect]
     Active Substance: EZETIMIBE\ROSUVASTATIN ZINC
     Indication: Type V hyperlipidaemia
     Route: 065
     Dates: start: 20220308, end: 20220601
  6. PRAVASTATIN [Suspect]
     Active Substance: PRAVASTATIN
     Indication: Type V hyperlipidaemia
     Route: 065
     Dates: start: 19960101, end: 19981210
  7. GLUCOPHAGE [Concomitant]
     Active Substance: METFORMIN HYDROCHLORIDE
     Indication: Product used for unknown indication
     Route: 065
  8. T4 75 MCG/TAB [Concomitant]
     Indication: Product used for unknown indication
     Route: 065
  9. SALOSPIR 100MG/TAB [Concomitant]
     Indication: Product used for unknown indication
     Route: 065

REACTIONS (6)
  - Myalgia [Recovered/Resolved]
  - Myalgia [Recovered/Resolved]
  - Myalgia [Recovered/Resolved]
  - Myalgia [Recovered/Resolved]
  - Myalgia [Recovered/Resolved]
  - Myalgia [Recovered/Resolved]

NARRATIVE: CASE EVENT DATE: 19960101
